FAERS Safety Report 25772091 (Version 1)
Quarter: 2025Q3

REPORT INFORMATION
  Report Type: Spontaneous
  Country: US (occurrence: US)
  Receive Date: 20250908
  Receipt Date: 20250908
  Transmission Date: 20251020
  Serious: No
  Sender: SANOFI AVENTIS
  Company Number: US-SA-2025SA261702

PATIENT
  Age: 66 Year
  Sex: Female

DRUGS (4)
  1. KEVZARA [Suspect]
     Active Substance: SARILUMAB
     Indication: Steroid therapy
     Route: 058
  2. KEVZARA [Suspect]
     Active Substance: SARILUMAB
     Indication: Chondrocalcinosis
  3. KEVZARA [Suspect]
     Active Substance: SARILUMAB
     Indication: Osteoarthritis
  4. KEVZARA [Suspect]
     Active Substance: SARILUMAB
     Indication: Connective tissue disorder

REACTIONS (1)
  - Off label use [Unknown]
